FAERS Safety Report 7742533-6 (Version None)
Quarter: 2011Q3

REPORT INFORMATION
  Report Type: 
  Country: None (occurrence: None)
  Receive Date: 20110912
  Receipt Date: 20110906
  Transmission Date: 20111222
  Serious: Yes (Death)
  Sender: FDA-Public Use
  Company Number: DE-ACTELION-A-US2011-53649

PATIENT
  Sex: Male

DRUGS (2)
  1. SILDENAFIL CITRATE [Concomitant]
  2. VENTAVIS [Suspect]
     Indication: PULMONARY HYPERTENSION
     Dosage: 5 UG, Q 4HR
     Route: 055
     Dates: start: 20110126

REACTIONS (1)
  - DEATH [None]
